FAERS Safety Report 7759900-7 (Version None)
Quarter: 2011Q3

REPORT INFORMATION
  Report Type: 
  Country: None (occurrence: None)
  Receive Date: 20110919
  Receipt Date: 20110912
  Transmission Date: 20111222
  Serious: Yes (Hospitalization, Other)
  Sender: FDA-Public Use
  Company Number: NO-MERCK-1104NOR00003

PATIENT
  Age: 4 Year
  Sex: Female

DRUGS (4)
  1. SINGULAIR [Suspect]
     Indication: ASTHMA
     Route: 048
     Dates: start: 20100310, end: 20100601
  2. SINGULAIR [Suspect]
     Route: 048
     Dates: start: 20100901, end: 20110401
  3. ALBUTEROL SULFATE [Concomitant]
     Indication: ASTHMA
     Route: 055
     Dates: start: 20100210
  4. FLUTICASONE PROPIONATE [Concomitant]
     Indication: ASTHMA
     Route: 048
     Dates: start: 20101216

REACTIONS (4)
  - AGGRESSION [None]
  - CRYING [None]
  - RESPIRATORY TRACT INFECTION [None]
  - ATONIC SEIZURES [None]
